FAERS Safety Report 9327946 (Version 1)
Quarter: 2013Q2

REPORT INFORMATION
  Report Type: Spontaneous
  Country: US (occurrence: US)
  Receive Date: 20130604
  Receipt Date: 20130604
  Transmission Date: 20140414
  Serious: No
  Sender: FDA-Public Use
  Company Number: US-SANOFI-AVENTIS-2012SA028681

PATIENT
  Sex: Female

DRUGS (5)
  1. LANTUS [Suspect]
     Dosage: 35 AM, 15PM
     Route: 058
     Dates: start: 201107
  2. LANTUS [Suspect]
     Route: 058
  3. SOLOSTAR [Suspect]
     Dates: start: 201107
  4. LISINOPRIL [Concomitant]
  5. ALL OTHER THERAPEUTIC PRODUCTS [Concomitant]

REACTIONS (5)
  - Nausea [Unknown]
  - Dyspnoea [Unknown]
  - Sleep disorder [Unknown]
  - Blood glucose decreased [Unknown]
  - Blood glucose increased [Unknown]
